FAERS Safety Report 12823865 (Version 1)
Quarter: 2016Q4

REPORT INFORMATION
  Report Type: Spontaneous
  Country: US (occurrence: US)
  Receive Date: 20161007
  Receipt Date: 20161007
  Transmission Date: 20170207
  Serious: No
  Sender: FDA-Public Use
  Company Number: US-GLAXOSMITHKLINE-US2016145704

PATIENT
  Sex: Male

DRUGS (1)
  1. VENTOLIN HFA [Suspect]
     Active Substance: ALBUTEROL SULFATE
     Indication: CARDIAC FAILURE CONGESTIVE
     Dosage: 2 PUFF(S), BID
     Route: 055

REACTIONS (4)
  - Product cleaning inadequate [Unknown]
  - Device use error [Recovering/Resolving]
  - Intentional product misuse [Unknown]
  - Product use issue [Unknown]
